FAERS Safety Report 4530956-8 (Version None)
Quarter: 2004Q4

REPORT INFORMATION
  Report Type: 
  Country: None (occurrence: None)
  Receive Date: 20041217
  Receipt Date: 20041203
  Transmission Date: 20050328
  Serious: Yes (Other)
  Sender: FDA-Public Use
  Company Number: PHEH2004US12953

PATIENT
  Age: 45 Year
  Sex: Female

DRUGS (3)
  1. ZELNORM [Suspect]
     Dosage: 6 MG, QD
     Route: 048
     Dates: start: 20041101, end: 20041129
  2. PROTONIX [Concomitant]
  3. HYDROCHLOROTHIAZIDE [Concomitant]

REACTIONS (1)
  - BLOOD PRESSURE INCREASED [None]
